FAERS Safety Report 7245959-2 (Version None)
Quarter: 2011Q1

REPORT INFORMATION
  Report Type: 
  Country: None (occurrence: None)
  Receive Date: 20110126
  Receipt Date: 20101129
  Transmission Date: 20110831
  Serious: Yes (Other)
  Sender: FDA-Public Use
  Company Number: US-BAYER-201036830NA

PATIENT
  Sex: Female
  Weight: 127.44 kg

DRUGS (9)
  1. OCELLA [Suspect]
     Indication: DYSMENORRHOEA
     Route: 048
     Dates: start: 20071201, end: 20091201
  2. FLUOXETINE [Concomitant]
     Indication: DEPRESSION
     Dates: start: 20000101
  3. TRINESSA [Concomitant]
  4. OCELLA [Suspect]
     Indication: CONTRACEPTION
  5. ALLEGRA [Concomitant]
     Indication: MULTIPLE ALLERGIES
     Dates: start: 20050101
  6. L-CARNITINE [Concomitant]
  7. OCELLA [Suspect]
     Indication: ACNE
  8. PHENTERMINE [Concomitant]
     Indication: OBESITY
     Dosage: 37.5 MG, QD
  9. WELLBUTRIN [Concomitant]

REACTIONS (9)
  - ABDOMINAL PAIN UPPER [None]
  - MALAISE [None]
  - CHOLECYSTITIS CHRONIC [None]
  - NAUSEA [None]
  - CHOLELITHIASIS [None]
  - GALLBLADDER DISORDER [None]
  - ABDOMINAL PAIN [None]
  - ABDOMINAL DISTENSION [None]
  - VOMITING [None]
